FAERS Safety Report 7177062-4 (Version None)
Quarter: 2010Q4

REPORT INFORMATION
  Report Type: 
  Country: None (occurrence: None)
  Receive Date: 20101220
  Receipt Date: 20101213
  Transmission Date: 20110411
  Serious: Yes (Other)
  Sender: FDA-Public Use
  Company Number: US-AMGEN-USASP2010009042

PATIENT

DRUGS (1)
  1. ENBREL [Suspect]
     Indication: RHEUMATOID ARTHRITIS
     Dosage: 50 MG, QWK
     Dates: start: 20080720

REACTIONS (5)
  - COLITIS ISCHAEMIC [None]
  - DRY MOUTH [None]
  - ONYCHOCLASIS [None]
  - SLEEP DISORDER [None]
  - TONGUE DRY [None]
